FAERS Safety Report 15889872 (Version 1)
Quarter: 2019Q1

REPORT INFORMATION
  Report Type: Spontaneous
  Country: FR (occurrence: FR)
  Receive Date: 20190130
  Receipt Date: 20190130
  Transmission Date: 20190417
  Serious: Yes (Hospitalization)
  Sender: FDA-Public Use
  Company Number: FR-PFIZER INC-2019036988

PATIENT
  Age: 72 Year
  Sex: Male
  Weight: 77 kg

DRUGS (3)
  1. PREGABALIN. [Suspect]
     Active Substance: PREGABALIN
     Indication: PAIN
     Dosage: 300 MG, UNK
     Route: 048
     Dates: end: 20181116
  2. ERYTHROMYCINE [ERYTHROMYCIN] [Suspect]
     Active Substance: ERYTHROMYCIN
     Indication: INFECTION
     Dosage: 3 G, UNK
     Route: 042
     Dates: start: 20181114, end: 20181115
  3. RIVAROXABAN [Suspect]
     Active Substance: RIVAROXABAN
     Dosage: 30 MG, UNK
     Route: 048
     Dates: start: 20181114, end: 20181116

REACTIONS (1)
  - Hepatitis [Recovered/Resolved]

NARRATIVE: CASE EVENT DATE: 20181116
